FAERS Safety Report 10790522 (Version 1)
Quarter: 2015Q1

REPORT INFORMATION
  Report Type: Spontaneous
  Country: KR (occurrence: KR)
  Receive Date: 20150212
  Receipt Date: 20150212
  Transmission Date: 20150721
  Serious: Yes (Other)
  Sender: FDA-Public Use
  Company Number: PHHY2015KR016466

PATIENT
  Age: 55 Year
  Sex: Female

DRUGS (2)
  1. PREDNISOLONE. [Suspect]
     Active Substance: PREDNISOLONE
     Indication: NODAL MARGINAL ZONE B-CELL LYMPHOMA
     Route: 065
  2. OXALIPLATIN. [Suspect]
     Active Substance: OXALIPLATIN
     Indication: NODAL MARGINAL ZONE B-CELL LYMPHOMA
     Route: 065

REACTIONS (2)
  - Hepatitis [Unknown]
  - Hepatitis B [Recovering/Resolving]
